FAERS Safety Report 7914518-8 (Version None)
Quarter: 2011Q4

REPORT INFORMATION
  Report Type: 
  Country: None (occurrence: None)
  Receive Date: 20111115
  Receipt Date: 20111101
  Transmission Date: 20120403
  Serious: Yes (Other)
  Sender: FDA-Public Use
  Company Number: PHEH2011US08460

PATIENT
  Sex: Female

DRUGS (1)
  1. TEKAMLO [Suspect]
     Indication: HYPERTENSION
     Dosage: 1 DF, QD
     Route: 048
     Dates: start: 20110507, end: 20111020

REACTIONS (1)
  - DERMATITIS BULLOUS [None]
